FAERS Safety Report 18156306 (Version 1)
Quarter: 2020Q3

REPORT INFORMATION
  Report Type: Spontaneous
  Country: US (occurrence: US)
  Receive Date: 20200815
  Receipt Date: 20200815
  Transmission Date: 20201103
  Serious: No
  Sender: FDA-Public Use
  Company Number: None

PATIENT
  Age: 49 Year
  Sex: Male
  Weight: 82.8 kg

DRUGS (5)
  1. REMICADE [Suspect]
     Active Substance: INFLIXIMAB
     Indication: CROHN^S DISEASE
     Dosage: ?          QUANTITY:5 CC;OTHER FREQUENCY:VARIABLE;?
     Route: 042
     Dates: start: 20200622, end: 20200813
  2. DILTIAZEM ER [Concomitant]
     Active Substance: DILTIAZEM
  3. REMICADE [Suspect]
     Active Substance: INFLIXIMAB
     Indication: CROHN^S DISEASE
     Dosage: ?          QUANTITY:10 CC;OTHER FREQUENCY:VARIABLE;?
     Route: 042
     Dates: start: 20200622, end: 20200813
  4. BUDESONIDE EC [Concomitant]
     Active Substance: BUDESONIDE
  5. ARMOUR THYROID [Concomitant]
     Active Substance: THYROID, PORCINE

REACTIONS (4)
  - Chills [None]
  - Palpitations [None]
  - Tremor [None]
  - Erythema [None]

NARRATIVE: CASE EVENT DATE: 20200803
